FAERS Safety Report 11667715 (Version 1)
Quarter: 2015Q4

REPORT INFORMATION
  Report Type: Spontaneous
  Country: US (occurrence: US)
  Receive Date: 20151027
  Receipt Date: 20151027
  Transmission Date: 20160304
  Serious: No
  Sender: FDA-Public Use
  Company Number: US-ELI_LILLY_AND_COMPANY-US201003001506

PATIENT
  Age: 40 Year
  Sex: Female

DRUGS (7)
  1. FORTEO [Suspect]
     Active Substance: TERIPARATIDE
     Dosage: 20 UG, QOD
     Dates: start: 200907, end: 201002
  2. OSCAL [Concomitant]
     Active Substance: CALCIUM CARBONATE
  3. ANTIBIOTICS [Concomitant]
     Active Substance: UNSPECIFIED INGREDIENT
     Dates: start: 201002
  4. FORTEO [Suspect]
     Active Substance: TERIPARATIDE
     Indication: OSTEOPOROSIS
     Dosage: 20 UG, UNK
     Dates: start: 200803, end: 200803
  5. PHENERGAN [Concomitant]
     Active Substance: PROMETHAZINE HYDROCHLORIDE
  6. FORTEO [Suspect]
     Active Substance: TERIPARATIDE
     Dosage: UNK, EVERY THIRD DAY
     Dates: start: 201002, end: 201002
  7. VITAMIN D [Concomitant]
     Active Substance: CHOLECALCIFEROL
     Dosage: 2000 MG, UNK

REACTIONS (10)
  - Rib fracture [Unknown]
  - Oral mucosal blistering [Unknown]
  - Vomiting [Unknown]
  - Pain [Unknown]
  - Tooth disorder [Unknown]
  - Head discomfort [Unknown]
  - Malaise [Unknown]
  - Off label use [Recovered/Resolved]
  - Pain in jaw [Unknown]
  - Fear [Unknown]

NARRATIVE: CASE EVENT DATE: 200803
